FAERS Safety Report 4636784-7 (Version None)
Quarter: 2005Q2

REPORT INFORMATION
  Report Type: 
  Country: None (occurrence: None)
  Receive Date: 20050414
  Receipt Date: 20050328
  Transmission Date: 20051028
  Serious: Yes (Other)
  Sender: FDA-Public Use
  Company Number: 1782

PATIENT
  Age: 36 Year
  Sex: Female

DRUGS (2)
  1. AVINZA [Suspect]
     Indication: BACK PAIN
     Dosage: 60 MG QD; PO
     Route: 048
     Dates: start: 20040401, end: 20041101
  2. AVINZA [Suspect]
     Indication: BACK PAIN
     Dosage: 60 MG QD; IV
     Route: 042
     Dates: start: 20041101, end: 20041201

REACTIONS (3)
  - EMOTIONAL DISTRESS [None]
  - INTENTIONAL MISUSE [None]
  - NAUSEA [None]
